FAERS Safety Report 5002074-6 (Version None)
Quarter: 2006Q2

REPORT INFORMATION
  Report Type: 
  Country: None (occurrence: None)
  Receive Date: 20060515
  Receipt Date: 20060403
  Transmission Date: 20061013
  Serious: Yes (Death, Hospitalization)
  Sender: FDA-Public Use
  Company Number: US-MERCK-0604USA00171

PATIENT
  Age: 61 Year
  Sex: Female
  Weight: 61 kg

DRUGS (16)
  1. VIOXX [Suspect]
     Indication: PAIN MANAGEMENT
     Route: 048
     Dates: start: 20030722, end: 20040421
  2. HYDROCODONE BITARTRATE [Concomitant]
     Route: 065
  3. BUSPIRONE HYDROCHLORIDE [Concomitant]
     Route: 065
  4. INSULIN [Concomitant]
     Route: 065
  5. CIPRO [Concomitant]
     Route: 065
  6. CELEXA [Concomitant]
     Route: 065
  7. NORVASC [Concomitant]
     Route: 065
  8. ALTACE [Concomitant]
     Route: 065
  9. PROTONIX [Concomitant]
     Route: 065
  10. NITROFURANTOIN [Concomitant]
     Route: 065
  11. NEURONTIN [Concomitant]
     Route: 065
  12. IMURAN [Concomitant]
     Route: 065
  13. AMBIEN [Concomitant]
     Route: 065
  14. PREDNISONE [Concomitant]
     Route: 065
  15. MACROBID [Concomitant]
     Route: 065
  16. NITROQUICK [Concomitant]
     Route: 065

REACTIONS (2)
  - CORONARY ARTERY DISEASE [None]
  - MYOCARDIAL INFARCTION [None]
